FAERS Safety Report 13107926 (Version 1)
Quarter: 2017Q1

REPORT INFORMATION
  Report Type: Spontaneous
  Country: US (occurrence: US)
  Receive Date: 20170112
  Receipt Date: 20170112
  Transmission Date: 20170428
  Serious: No
  Sender: FDA-Public Use
  Company Number: US-ZYDUS-010749

PATIENT
  Sex: Female

DRUGS (2)
  1. OMEPRAZOLE. [Suspect]
     Active Substance: OMEPRAZOLE
     Indication: GASTROOESOPHAGEAL REFLUX DISEASE
     Route: 048
  2. CROMOGLICIC ACID [Concomitant]
     Active Substance: CROMOLYN
     Indication: SYSTEMIC MASTOCYTOSIS

REACTIONS (1)
  - Abdominal pain [Not Recovered/Not Resolved]
